FAERS Safety Report 18199079 (Version 2)
Quarter: 2020Q4

REPORT INFORMATION
  Report Type: Spontaneous
  Country: US (occurrence: US)
  Receive Date: 20200826
  Receipt Date: 20201126
  Transmission Date: 20210113
  Serious: Yes (Other)
  Sender: FDA-Public Use
  Company Number: US-ASTRAZENECA-2020SF04991

PATIENT
  Age: 19007 Day
  Sex: Male

DRUGS (57)
  1. HYDROCODONE-APAP [Concomitant]
     Active Substance: ACETAMINOPHEN\HYDROCODONE
  2. AZITHROMYCIN ANHYDROUS. [Concomitant]
     Active Substance: AZITHROMYCIN ANHYDROUS
  3. TAMSULOSIN [Concomitant]
     Active Substance: TAMSULOSIN
  4. DETROL [Concomitant]
     Active Substance: TOLTERODINE TARTRATE
  5. LEVOFLOXACIN. [Concomitant]
     Active Substance: LEVOFLOXACIN
  6. BENZONATATE. [Concomitant]
     Active Substance: BENZONATATE
  7. LIPITOR [Concomitant]
     Active Substance: ATORVASTATIN CALCIUM
     Indication: BLOOD CHOLESTEROL ABNORMAL
     Dates: start: 2007
  8. OPTIVAR [Concomitant]
     Active Substance: AZELASTINE HYDROCHLORIDE
     Indication: EYE DISORDER
     Dates: start: 2017
  9. DETROL LA [Concomitant]
     Active Substance: TOLTERODINE TARTRATE
     Indication: BLADDER DISORDER
     Dates: start: 2010
  10. VERAPAMIL [Concomitant]
     Active Substance: VERAPAMIL HYDROCHLORIDE
  11. ALPRAZOLAM. [Concomitant]
     Active Substance: ALPRAZOLAM
  12. CIPROFLOXACIN. [Concomitant]
     Active Substance: CIPROFLOXACIN
  13. MONTELUKAST [Concomitant]
     Active Substance: MONTELUKAST SODIUM
  14. VERAPAMIL [Concomitant]
     Active Substance: VERAPAMIL HYDROCHLORIDE
  15. TRIAMCINOLONE [Concomitant]
     Active Substance: TRIAMCINOLONE
  16. PROMETHAZINE [Concomitant]
     Active Substance: PROMETHAZINE HYDROCHLORIDE
  17. JANUVIA [Concomitant]
     Active Substance: SITAGLIPTIN PHOSPHATE
  18. NORCO [Concomitant]
     Active Substance: ACETAMINOPHEN\HYDROCODONE BITARTRATE
     Indication: PAIN
     Dates: start: 2010
  19. LEVAQUIN [Concomitant]
     Active Substance: LEVOFLOXACIN
  20. KETOROLAC [Concomitant]
     Active Substance: KETOROLAC TROMETHAMINE
  21. GLIPIZIDE. [Concomitant]
     Active Substance: GLIPIZIDE
  22. CIPRODEX [Concomitant]
     Active Substance: CIPROFLOXACIN HYDROCHLORIDE\DEXAMETHASONE
  23. FLUARIX NOS [Concomitant]
     Active Substance: INFLUENZA VIRUS VACCINE
  24. INVOKANA [Concomitant]
     Active Substance: CANAGLIFLOZIN
  25. SULFAMETHOXAZOLE [Concomitant]
     Active Substance: SULFAMETHOXAZOLE
  26. XYZAL [Concomitant]
     Active Substance: LEVOCETIRIZINE DIHYDROCHLORIDE
     Indication: MULTIPLE ALLERGIES
     Dates: start: 2018
  27. AMOXICILLIN. [Concomitant]
     Active Substance: AMOXICILLIN
  28. DOXYCYCLINE. [Concomitant]
     Active Substance: DOXYCYCLINE
  29. LEVOCETIRIZINE [Concomitant]
     Active Substance: LEVOCETIRIZINE
  30. MUPIROCIN. [Concomitant]
     Active Substance: MUPIROCIN
  31. CEFDINIR. [Concomitant]
     Active Substance: CEFDINIR
  32. LYRICA [Concomitant]
     Active Substance: PREGABALIN
  33. FLAVOXATE [Concomitant]
     Active Substance: FLAVOXATE
  34. PREDNISONE. [Concomitant]
     Active Substance: PREDNISONE
  35. IOPHEN-C [Concomitant]
  36. NEXIUM [Suspect]
     Active Substance: ESOMEPRAZOLE MAGNESIUM
     Indication: GASTROINTESTINAL DISORDER
     Route: 048
     Dates: start: 2004, end: 2016
  37. NEXIUM [Suspect]
     Active Substance: ESOMEPRAZOLE MAGNESIUM
     Indication: GASTROINTESTINAL DISORDER
     Route: 048
     Dates: start: 20121108
  38. FLEXERIL [Concomitant]
     Active Substance: CYCLOBENZAPRINE HYDROCHLORIDE
     Indication: BACK PAIN
     Dates: start: 2015
  39. CYMBELTA [Concomitant]
     Indication: DEPRESSION
     Dates: start: 2005
  40. VICTOZA [Concomitant]
     Active Substance: LIRAGLUTIDE
     Indication: DIABETES MELLITUS
     Dates: start: 2017
  41. IBUPROFEN. [Concomitant]
     Active Substance: IBUPROFEN
     Indication: PAIN
     Dates: start: 2007
  42. CARISOPRODOL. [Concomitant]
     Active Substance: CARISOPRODOL
  43. NEOMYCIN. [Concomitant]
     Active Substance: NEOMYCIN
  44. LOSARTAN. [Concomitant]
     Active Substance: LOSARTAN
  45. NITROFURANTOIN. [Concomitant]
     Active Substance: NITROFURANTOIN
  46. FLOMAX [Concomitant]
     Active Substance: TAMSULOSIN HYDROCHLORIDE
     Indication: BLADDER DISORDER
     Dates: start: 2010
  47. UNISOM SLEEPTABS [Concomitant]
     Active Substance: DOXYLAMINE SUCCINATE
     Indication: SLEEP DISORDER
     Dates: start: 2018
  48. ONDANSETRON [Concomitant]
     Active Substance: ONDANSETRON
  49. GUAIFENESIN. [Concomitant]
     Active Substance: GUAIFENESIN
  50. HYDROCHLOROTHIAZIDE. [Concomitant]
     Active Substance: HYDROCHLOROTHIAZIDE
  51. SULFAMETHOXAZOLE [Concomitant]
     Active Substance: SULFAMETHOXAZOLE
  52. ASPIRIN. [Concomitant]
     Active Substance: ASPIRIN
  53. TOLTERODINE [Concomitant]
     Active Substance: TOLTERODINE
  54. CEPHALEXIN. [Concomitant]
     Active Substance: CEPHALEXIN
  55. CLINDAMYCIN. [Concomitant]
     Active Substance: CLINDAMYCIN
  56. LOTEMAX [Concomitant]
     Active Substance: LOTEPREDNOL ETABONATE
  57. TROSPIUM CHLORIDE. [Concomitant]
     Active Substance: TROSPIUM CHLORIDE

REACTIONS (1)
  - Chronic kidney disease [Not Recovered/Not Resolved]

NARRATIVE: CASE EVENT DATE: 20140708
